FAERS Safety Report 4394818-1 (Version None)
Quarter: 2004Q3

REPORT INFORMATION
  Report Type: 
  Country: None (occurrence: None)
  Receive Date: 20040706
  Receipt Date: 20040622
  Transmission Date: 20050211
  Serious: Yes (Hospitalization)
  Sender: FDA-Public Use
  Company Number: S04-FRA-02773-01

PATIENT
  Age: 84 Year
  Sex: Female

DRUGS (4)
  1. MEMANTINE HCL [Suspect]
     Indication: COGNITIVE DISORDER
  2. SEROPRAM (CITALOPRAM HYDROBROMIDE) [Suspect]
     Indication: COGNITIVE DISORDER
  3. INSULIN [Concomitant]
  4. MEPROBAMATE [Concomitant]

REACTIONS (7)
  - BLOOD GLUCOSE INCREASED [None]
  - CEREBRAL ISCHAEMIA [None]
  - GASTROINTESTINAL HAEMORRHAGE [None]
  - HAEMATOMA [None]
  - HAEMOGLOBIN DECREASED [None]
  - MELAENA [None]
  - PLATELET COUNT DECREASED [None]
